FAERS Safety Report 6275942-5 (Version None)
Quarter: 2009Q3

REPORT INFORMATION
  Report Type: 
  Country: None (occurrence: None)
  Receive Date: 20090720
  Receipt Date: 20090709
  Transmission Date: 20100115
  Serious: Yes (Other)
  Sender: FDA-Public Use
  Company Number: 2009S1005394

PATIENT
  Age: 66 Year
  Sex: Male

DRUGS (1)
  1. SODIUM PHOSPHATES [Suspect]
     Indication: COLONOSCOPY
     Dosage: 90 ML; TOTAL; PO
     Route: 048
     Dates: start: 20050101, end: 20050101

REACTIONS (3)
  - RENAL ATROPHY [None]
  - RENAL FAILURE [None]
  - VASCULAR OCCLUSION [None]
